FAERS Safety Report 6382299-8 (Version None)
Quarter: 2009Q3

REPORT INFORMATION
  Report Type: 
  Country: None (occurrence: None)
  Receive Date: 20090925
  Receipt Date: 20090910
  Transmission Date: 20100115
  Serious: Yes (Hospitalization)
  Sender: FDA-Public Use
  Company Number: 2009002414

PATIENT
  Sex: Male

DRUGS (18)
  1. ERLOTINIB HYDROCHLORIDE [Suspect]
     Indication: NON-SMALL CELL LUNG CANCER
     Dosage: 150 MG, QD, ORAL
     Route: 048
     Dates: start: 20090420, end: 20090605
  2. TYLENOL [Concomitant]
  3. AVODART [Concomitant]
  4. HYDROCODONE (HYDROCODONE) [Concomitant]
  5. RANITIDINE [Concomitant]
  6. ASPIRIN [Concomitant]
  7. POTASSIUM (POTASSIUM) [Concomitant]
  8. CALCIUM (CALCIUM) [Concomitant]
  9. GLUCOSAMINE (GLUCOSAMINE) [Concomitant]
  10. CHONDROITIN [Concomitant]
  11. BISACODYL (BISACODYL) [Concomitant]
  12. COUMADIN [Concomitant]
  13. DOCUSATE SODIUM (DOCUSATE SODIUM) [Concomitant]
  14. DOXEPIN HCL [Concomitant]
  15. IPRATROPIUM BROMIDE [Concomitant]
  16. LEVAQUIN [Concomitant]
  17. PROSTAT (CHLORMADINONE ACETATE) [Concomitant]
  18. SERTRALINE HCL [Concomitant]

REACTIONS (2)
  - BRONCHOPULMONARY ASPERGILLOSIS [None]
  - PULMONARY EMBOLISM [None]
